FAERS Safety Report 4873413-1 (Version None)
Quarter: 2006Q1

REPORT INFORMATION
  Report Type: 
  Country: None (occurrence: None)
  Receive Date: 20060105
  Receipt Date: 20051227
  Transmission Date: 20060701
  Serious: Yes (Other)
  Sender: FDA-Public Use
  Company Number: BE-ABBOTT-05P-013-0320849-00

PATIENT
  Age: 57 Year
  Sex: Female

DRUGS (1)
  1. VALPROIC ACID [Suspect]
     Indication: EPILEPSY
     Route: 065

REACTIONS (3)
  - PLEURAL EFFUSION [None]
  - PYREXIA [None]
  - TACHYPNOEA [None]
